FAERS Safety Report 9157187 (Version 2)
Quarter: 2013Q1

REPORT INFORMATION
  Report Type: Report from Study
  Country: IT (occurrence: IT)
  Receive Date: 20130312
  Receipt Date: 20130318
  Transmission Date: 20140127
  Serious: Yes (Death)
  Sender: FDA-Public Use
  Company Number: IT-PFIZER INC-2013079967

PATIENT
  Sex: Female

DRUGS (1)
  1. AXITINIB [Suspect]
     Indication: METASTATIC RENAL CELL CARCINOMA
     Dosage: UNK
     Route: 048
     Dates: start: 201205

REACTIONS (2)
  - Disease progression [Fatal]
  - Metastatic renal cell carcinoma [Fatal]
